FAERS Safety Report 4496456-9 (Version None)
Quarter: 2004Q4

REPORT INFORMATION
  Report Type: 
  Country: None (occurrence: None)
  Receive Date: 20041105
  Receipt Date: 20041025
  Transmission Date: 20050328
  Serious: Yes (Hospitalization)
  Sender: FDA-Public Use
  Company Number: 003055

PATIENT
  Age: 32 Year
  Sex: Female
  Weight: 51.2 kg

DRUGS (1)
  1. JUNEL FE 1/20 28 DAY (NORETHINDRONE ACETATE, ETHINYLNORGESTRADIOL, FER [Suspect]
     Indication: CONTRACEPTION
     Dosage: 1.00TABLET, QD, ORAL
     Route: 048
     Dates: start: 20040628, end: 20041025

REACTIONS (8)
  - DYSPNOEA [None]
  - HEADACHE [None]
  - HYPOAESTHESIA [None]
  - MENSTRUAL DISORDER [None]
  - MIGRAINE [None]
  - MUSCULAR WEAKNESS [None]
  - PARAESTHESIA [None]
  - POST PROCEDURAL COMPLICATION [None]
